FAERS Safety Report 12911617 (Version 1)
Quarter: 2016Q4

REPORT INFORMATION
  Report Type: Spontaneous
  Country: US (occurrence: US)
  Receive Date: 20161104
  Receipt Date: 20161104
  Transmission Date: 20170207
  Serious: Yes (Other)
  Sender: FDA-Public Use
  Company Number: PHEH2016US028285

PATIENT
  Age: 12 Year
  Sex: Male
  Weight: 56.24 kg

DRUGS (1)
  1. FOCALIN XR [Suspect]
     Active Substance: DEXMETHYLPHENIDATE HYDROCHLORIDE
     Indication: ATTENTION DEFICIT/HYPERACTIVITY DISORDER
     Dosage: 20 MG, QD
     Route: 048
     Dates: start: 20130301

REACTIONS (2)
  - Basedow^s disease [Unknown]
  - Tremor [Unknown]

NARRATIVE: CASE EVENT DATE: 20160601
